FAERS Safety Report 16618648 (Version 3)
Quarter: 2019Q3

REPORT INFORMATION
  Report Type: Report from Study
  Country: US (occurrence: US)
  Receive Date: 20190723
  Receipt Date: 20190924
  Transmission Date: 20191004
  Serious: Yes (Hospitalization)
  Sender: FDA-Public Use
  Company Number: PHEH2019US030198

PATIENT
  Sex: Male

DRUGS (2)
  1. COSENTYX [Suspect]
     Active Substance: SECUKINUMAB
     Indication: PSORIATIC ARTHROPATHY
     Dosage: 300 MG, QMO
     Route: 058
  2. COSENTYX [Suspect]
     Active Substance: SECUKINUMAB
     Indication: PSORIASIS

REACTIONS (13)
  - Loss of consciousness [Recovered/Resolved]
  - Cold sweat [Recovered/Resolved]
  - Oropharyngeal pain [Recovered/Resolved]
  - Nausea [Recovered/Resolved]
  - Yawning [Recovered/Resolved]
  - Tongue discolouration [Recovering/Resolving]
  - Pain [Recovering/Resolving]
  - Psoriasis [Recovering/Resolving]
  - Skin discolouration [Recovering/Resolving]
  - Fatigue [Recovered/Resolved]
  - Lip discolouration [Recovering/Resolving]
  - Joint swelling [Unknown]
  - Therapeutic product effect incomplete [Recovering/Resolving]
